FAERS Safety Report 17433872 (Version 2)
Quarter: 2020Q1

REPORT INFORMATION
  Report Type: Spontaneous
  Country: US (occurrence: US)
  Receive Date: 20200219
  Receipt Date: 20200309
  Transmission Date: 20200409
  Serious: No
  Sender: FDA-Public Use
  Company Number: US-TEVA-2020-US-1181101

PATIENT
  Sex: Female

DRUGS (1)
  1. AJOVY [Suspect]
     Active Substance: FREMANEZUMAB-VFRM
     Dates: start: 201909

REACTIONS (8)
  - Patient dissatisfaction with treatment [Unknown]
  - Injection site reaction [Unknown]
  - Rash [Unknown]
  - Emotional distress [Unknown]
  - Blood urine [Recovered/Resolved]
  - Injection site hypersensitivity [Unknown]
  - Injection site vesicles [Unknown]
  - Amenorrhoea [Recovered/Resolved]

NARRATIVE: CASE EVENT DATE: 201909
